FAERS Safety Report 11359267 (Version 1)
Quarter: 2015Q3

REPORT INFORMATION
  Report Type: Spontaneous
  Country: US (occurrence: US)
  Receive Date: 20150807
  Receipt Date: 20150807
  Transmission Date: 20151125
  Serious: Yes (Other)
  Sender: FDA-Public Use
  Company Number: US-ELI_LILLY_AND_COMPANY-US201508001675

PATIENT
  Age: 66 Year
  Sex: Female
  Weight: 62.59 kg

DRUGS (3)
  1. HUMALOG [Suspect]
     Active Substance: INSULIN LISPRO
     Indication: PRODUCT USED FOR UNKNOWN INDICATION
     Dosage: UNK
     Route: 058
  2. HUMALOG [Suspect]
     Active Substance: INSULIN LISPRO
     Dosage: 2.4 DF, SINGLE
     Route: 058
     Dates: start: 20150804
  3. HUMALOG [Suspect]
     Active Substance: INSULIN LISPRO
     Dosage: 1.3 DF, SINGLE
     Route: 058
     Dates: start: 20150803

REACTIONS (8)
  - Blood glucose increased [Not Recovered/Not Resolved]
  - Dry mouth [Unknown]
  - Blood glucose abnormal [Unknown]
  - Blood ketone body present [Unknown]
  - Cerebrovascular accident [Unknown]
  - Pollakiuria [Unknown]
  - Headache [Not Recovered/Not Resolved]
  - Extra dose administered [Unknown]

NARRATIVE: CASE EVENT DATE: 20150724
